FAERS Safety Report 6647663-8 (Version None)
Quarter: 2010Q1

REPORT INFORMATION
  Report Type: 
  Country: None (occurrence: None)
  Receive Date: 20100323
  Receipt Date: 20100323
  Transmission Date: 20100710
  Serious: Yes (Hospitalization)
  Sender: FDA-Public Use
  Company Number: None

PATIENT
  Age: 16 Year
  Sex: Female
  Weight: 63.6 kg

DRUGS (1)
  1. DOXYCYCLINE [Suspect]
     Indication: ACNE
     Dosage: 100 MILLIGRAM ONE A DAY MOUTH
     Route: 048
     Dates: start: 20100110, end: 20100113

REACTIONS (3)
  - BURN OESOPHAGEAL [None]
  - ERUCTATION [None]
  - ODYNOPHAGIA [None]
